FAERS Safety Report 6878623-X (Version None)
Quarter: 2010Q3

REPORT INFORMATION
  Report Type: 
  Country: None (occurrence: None)
  Receive Date: 20100728
  Receipt Date: 20100714
  Transmission Date: 20110219
  Serious: Yes (Death, Hospitalization)
  Sender: FDA-Public Use
  Company Number: A0866980A

PATIENT
  Age: 64 Year
  Sex: Male
  Weight: 77.7 kg

DRUGS (1)
  1. AVANDIA [Suspect]
     Dates: end: 20050101

REACTIONS (5)
  - BACTERIAL SEPSIS [None]
  - CEREBRAL INFARCTION [None]
  - CEREBROVASCULAR ACCIDENT [None]
  - RESPIRATORY FAILURE [None]
  - STATUS EPILEPTICUS [None]
